FAERS Safety Report 8542444-2 (Version None)
Quarter: 2012Q3

REPORT INFORMATION
  Report Type: 
  Country: None (occurrence: None)
  Receive Date: 20120726
  Receipt Date: 20120412
  Transmission Date: 20120928
  Serious: Yes (Hospitalization, Other)
  Sender: FDA-Public Use
  Company Number: US-ASTRAZENECA-2007UW09696

PATIENT
  Age: 24 Year
  Sex: Female
  Weight: 74.3 kg

DRUGS (27)
  1. ZOLOFT [Concomitant]
     Dates: start: 20070112
  2. PROTONIX [Concomitant]
     Dosage: 40 MG TWO TABLETS DAILY
     Dates: start: 20040510
  3. WELLBUTRIN XL [Concomitant]
     Indication: DEPRESSION
     Dates: start: 20040510
  4. PEPCID [Concomitant]
     Dosage: 40 MG TWO PILLS AT NIGHT
     Dates: start: 20050905
  5. PHENERGAN HCL [Concomitant]
     Indication: NAUSEA
     Dates: start: 20040305
  6. CYMBALTA [Concomitant]
     Indication: ANXIETY
     Dates: start: 20041214
  7. CYMBALTA [Concomitant]
     Route: 048
     Dates: start: 20070112
  8. RELAFIN [Concomitant]
     Indication: PAIN
     Dosage: 1-2 X/ DAY
  9. SEROQUEL [Suspect]
     Indication: DEPRESSION
     Dosage: 25 MG, 75 MG AND 100 MG
     Route: 048
     Dates: start: 20030101, end: 20070601
  10. ORTHO TRI-CYCLEN [Concomitant]
     Dates: start: 20040305, end: 20070112
  11. ORTHO TRI-CYCLEN [Concomitant]
     Dates: start: 20061117
  12. ROZEREM [Concomitant]
     Indication: INSOMNIA
     Route: 048
     Dates: start: 20070112
  13. VICODIN [Concomitant]
     Indication: PAIN
     Dosage: 1 TO 2 TABELTS PER PAIN A DAY
     Dates: start: 20030601
  14. SEROQUEL [Suspect]
     Indication: BIPOLAR DISORDER
     Dosage: 25 MG, 75 MG AND 100 MG
     Route: 048
     Dates: start: 20030101, end: 20070601
  15. SUBOXONE [Concomitant]
     Dates: start: 20030926
  16. PROZAC [Concomitant]
     Dates: start: 20061117
  17. SUBOXONE [Concomitant]
     Indication: CHEST DISCOMFORT
     Dosage: 8 MG HALF TABLET TWO TIMES A DAY
     Dates: start: 20040305
  18. NULEV [Concomitant]
     Dates: start: 20040305
  19. ORTHO TRI-CYCLEN [Concomitant]
     Dosage: 28 DAY 1 X/ DAY
     Dates: start: 20030601
  20. CYMBALTA [Concomitant]
     Indication: DEPRESSION
     Dates: start: 20041214
  21. ZANTAC [Concomitant]
     Dates: start: 20040305
  22. CYMBALTA [Concomitant]
     Route: 048
     Dates: start: 20070112
  23. YAZ [Concomitant]
     Indication: CONTRACEPTION
     Dates: start: 20070112
  24. ZOLOFT [Concomitant]
     Dates: start: 20030601
  25. CLONAZEPAM [Concomitant]
     Dosage: 1 PILL 2-3 TIMES A DAY AS NEEDED
     Dates: start: 20061117
  26. CLONAZEPAM [Concomitant]
  27. RISPERDAL [Concomitant]
     Indication: DEPRESSION
     Dates: start: 20060101, end: 20060101

REACTIONS (4)
  - ADVERSE DRUG REACTION [None]
  - PANCREATITIS ACUTE [None]
  - PANCREATITIS [None]
  - NAUSEA [None]
